FAERS Safety Report 5232742-2 (Version None)
Quarter: 2007Q1

REPORT INFORMATION
  Report Type: 
  Country: None (occurrence: None)
  Receive Date: 20070206
  Receipt Date: 20070206
  Transmission Date: 20070707
  Serious: No
  Sender: FDA-Public Use
  Company Number: None

PATIENT
  Sex: Female

DRUGS (6)
  1. XOLAIR [Suspect]
     Indication: ASTHMA
     Dosage: 150MG Q MTH IM
     Route: 030
     Dates: start: 20060124
  2. XOLAIR [Suspect]
     Indication: ASTHMA
     Dosage: 150MG Q MTH IM
     Route: 030
     Dates: start: 20060221
  3. XOLAIR [Suspect]
     Indication: ASTHMA
     Dosage: 150MG Q MTH IM
     Route: 030
     Dates: start: 20060321
  4. XOLAIR [Suspect]
     Indication: ASTHMA
     Dosage: 150MG Q MTH IM
     Route: 030
     Dates: start: 20060417
  5. XOLAIR [Suspect]
     Indication: ASTHMA
     Dosage: 150MG Q MTH IM
     Route: 030
     Dates: start: 20060522
  6. XOLAIR [Suspect]
     Indication: ASTHMA
     Dosage: 150MG Q MTH IM
     Route: 030
     Dates: start: 20060620

REACTIONS (1)
  - NON-HODGKIN'S LYMPHOMA [None]
